FAERS Safety Report 5622327-8 (Version None)
Quarter: 2008Q1

REPORT INFORMATION
  Report Type: 
  Country: None (occurrence: None)
  Receive Date: 20080206
  Receipt Date: 20080125
  Transmission Date: 20080703
  Serious: Yes (Death, Other)
  Sender: FDA-Public Use
  Company Number: 2008-00225

PATIENT
  Age: 73 Year
  Sex: Male
  Weight: 63 kg

DRUGS (10)
  1. VELCADE [Suspect]
     Indication: MULTIPLE MYELOMA
     Dosage: 2.00 MG, INTRAVENOUS : 1.50 MG, INTRAVENOUS : 1.00 MG, INTRAVENOUS
     Route: 042
     Dates: start: 20071025, end: 20071102
  2. VELCADE [Suspect]
     Indication: MULTIPLE MYELOMA
     Dosage: 2.00 MG, INTRAVENOUS : 1.50 MG, INTRAVENOUS : 1.00 MG, INTRAVENOUS
     Route: 042
     Dates: start: 20071126, end: 20071206
  3. VELCADE [Suspect]
     Indication: MULTIPLE MYELOMA
     Dosage: 2.00 MG, INTRAVENOUS : 1.50 MG, INTRAVENOUS : 1.00 MG, INTRAVENOUS
     Route: 042
     Dates: start: 20071218, end: 20071229
  4. DEXAMETHASONE TAB [Concomitant]
  5. LOXOPROFEN SODIUM (LOXOPROFEN SODIUM) [Concomitant]
  6. MUCOSTA (REBAMIPIDE) [Concomitant]
  7. FLUCONAZOLE [Concomitant]
  8. BAKTAR (SULFAMETHOXAZOLE, TRIMETHOPRIM) [Concomitant]
  9. MAGNESIUM OXIDE (MAGNESIUM OXIDE) [Concomitant]
  10. FAMOTIDINE [Concomitant]

REACTIONS (5)
  - CONSTIPATION [None]
  - DISEASE PROGRESSION [None]
  - HYPOAESTHESIA [None]
  - PLATELET COUNT DECREASED [None]
  - RASH [None]
